FAERS Safety Report 7354845-9 (Version None)
Quarter: 2011Q1

REPORT INFORMATION
  Report Type: 
  Country: None (occurrence: None)
  Receive Date: 20110316
  Receipt Date: 20110308
  Transmission Date: 20110831
  Serious: Yes (Other)
  Sender: FDA-Public Use
  Company Number: JP-SANOFI-AVENTIS-2010SA032278

PATIENT
  Age: 64 Year
  Sex: Male

DRUGS (10)
  1. AMLODIPINE BESILATE [Concomitant]
     Indication: HYPERTENSION
     Route: 048
  2. ALLEGRA [Suspect]
     Route: 048
     Dates: start: 20100524, end: 20100524
  3. AMARYL [Suspect]
     Indication: DIABETES MELLITUS
     Dosage: PER EVENING
     Route: 048
     Dates: start: 20070717
  4. ASPIRIN [Concomitant]
     Indication: PROPHYLAXIS
     Route: 048
  5. LOXONIN [Concomitant]
     Route: 048
  6. MYONAL [Suspect]
     Route: 048
  7. LOXONIN [Concomitant]
     Route: 048
  8. ALLEGRA [Suspect]
     Indication: URTICARIA
     Route: 048
     Dates: start: 20070205
  9. VALSARTAN [Concomitant]
     Indication: HYPERTENSION
     Route: 048
  10. MYONAL [Suspect]
     Route: 048

REACTIONS (5)
  - ABDOMINAL PAIN [None]
  - VOMITING [None]
  - COLD SWEAT [None]
  - SYNCOPE [None]
  - PALPITATIONS [None]
